FAERS Safety Report 7412218-4 (Version None)
Quarter: 2011Q2

REPORT INFORMATION
  Report Type: 
  Country: None (occurrence: None)
  Receive Date: 20110413
  Receipt Date: 20110331
  Transmission Date: 20111010
  Serious: Yes (Death)
  Sender: FDA-Public Use
  Company Number: JP-ELI_LILLY_AND_COMPANY-JP201104000044

PATIENT
  Sex: Male

DRUGS (11)
  1. ROHYPNOL [Concomitant]
     Indication: SCHIZOPHRENIA
     Dosage: 2 MG, QD
     Route: 048
  2. TEGRETOL [Concomitant]
     Indication: SCHIZOPHRENIA
     Dosage: 400 MG, QD
     Route: 048
  3. LEVOTOMIN [Concomitant]
     Indication: SCHIZOPHRENIA
     Dosage: 50 MG, QD
     Route: 048
  4. ZYPREXA [Suspect]
     Indication: SCHIZOPHRENIA
     Dosage: 10 MG, QD
     Route: 048
  5. MAGLAX [Concomitant]
     Indication: CONSTIPATION
     Dosage: 1320 MG, QD
     Route: 048
  6. LODOPIN [Concomitant]
     Indication: SCHIZOPHRENIA
     Dosage: 25 MG, QD
     Route: 048
  7. AKINETON [Concomitant]
     Indication: SCHIZOPHRENIA
     Dosage: 3 MG, QD
     Route: 048
  8. SENNOSIDE [Concomitant]
     Indication: CONSTIPATION
     Dosage: 48 MG, QD
     Route: 048
  9. ALOSENN                            /00476901/ [Concomitant]
     Indication: SCHIZOPHRENIA
     Dosage: UNK
     Route: 048
  10. SEROQUEL [Concomitant]
     Indication: SCHIZOPHRENIA
     Dosage: 700 MG, QD
     Route: 048
  11. BENZALIN [Concomitant]
     Indication: SCHIZOPHRENIA
     Dosage: 10 MG, QD
     Route: 048

REACTIONS (1)
  - DEATH [None]
